FAERS Safety Report 6410651-0 (Version None)
Quarter: 2009Q4

REPORT INFORMATION
  Report Type: 
  Country: None (occurrence: None)
  Receive Date: 20091022
  Receipt Date: 20091013
  Transmission Date: 20100525
  Serious: Yes (Other)
  Sender: FDA-Public Use
  Company Number: US-BIOGENIDEC-2009BI028599

PATIENT
  Age: 43 Year
  Sex: Female
  Weight: 61 kg

DRUGS (10)
  1. TYSABRI [Suspect]
     Indication: MULTIPLE SCLEROSIS
     Route: 042
     Dates: start: 20070924, end: 20090720
  2. CELEXA [Concomitant]
     Indication: DEPRESSION
     Route: 048
  3. TOPIRAMATE [Concomitant]
     Indication: MIGRAINE
  4. STOOL SOFTNER [Concomitant]
  5. RECTAL GEL [Concomitant]
     Route: 061
  6. NIFEDIPINE OINTMENT [Concomitant]
     Route: 061
  7. ALIGN [Concomitant]
  8. BENEFIBER [Concomitant]
  9. MIRALAX [Concomitant]
  10. DULCOLAX [Concomitant]

REACTIONS (1)
  - RECTAL ABSCESS [None]
